FAERS Safety Report 9233693 (Version 1)
Quarter: 2013Q2

REPORT INFORMATION
  Report Type: Spontaneous
  Country: US (occurrence: US)
  Receive Date: 20130416
  Receipt Date: 20130416
  Transmission Date: 20140414
  Serious: No
  Sender: FDA-Public Use
  Company Number: US-BANPHARM-20130865

PATIENT
  Age: 78 Year
  Sex: Male
  Weight: 68.04 kg

DRUGS (5)
  1. ALEVE LIQUID GELS 220MG [Suspect]
     Dosage: 1 DF, BID,
     Route: 048
     Dates: start: 201109, end: 201109
  2. 81 MG ASPIRIN [Concomitant]
  3. LISINOPRIL [Concomitant]
  4. SAW PALMETTO [Concomitant]
  5. GLUCOSAMINE CHONDROITIN [Concomitant]

REACTIONS (1)
  - Drug ineffective [Unknown]
